FAERS Safety Report 13831331 (Version 4)
Quarter: 2020Q2

REPORT INFORMATION
  Report Type: Report from Study
  Country: AU (occurrence: AU)
  Receive Date: 20170803
  Receipt Date: 20200401
  Transmission Date: 20200713
  Serious: Yes (Life-Threatening, Hospitalization, Other)
  Sender: FDA-Public Use
  Company Number: AU-ALEXION-A201707941

PATIENT
  Age: 27 Year
  Sex: Female

DRUGS (6)
  1. INFLUENZA VACCINE [Concomitant]
     Active Substance: INFLUENZA VIRUS VACCINE
     Indication: IMMUNISATION
     Dosage: UNK
     Route: 065
     Dates: start: 20170704
  2. CEFOTAXIME [Concomitant]
     Active Substance: CEFOTAXIME SODIUM
     Indication: ANTIBIOTIC PROPHYLAXIS
     Dosage: UNK
     Route: 042
  3. AMOXICILLIN TRIHYDRATE [Concomitant]
     Active Substance: AMOXICILLIN
     Indication: ANTIBIOTIC PROPHYLAXIS
     Dosage: UNK
     Route: 065
  4. SOLIRIS [Suspect]
     Active Substance: ECULIZUMAB
     Indication: PAROXYSMAL NOCTURNAL HAEMOGLOBINURIA
     Dosage: 600 MG, QW
     Route: 042
     Dates: start: 20131213
  5. SOLIRIS [Suspect]
     Active Substance: ECULIZUMAB
     Dosage: 900 MG, Q2W
     Route: 042
  6. SOLIRIS [Suspect]
     Active Substance: ECULIZUMAB
     Dosage: UNK
     Route: 065
     Dates: start: 2014

REACTIONS (15)
  - Swelling [Unknown]
  - Meningococcal sepsis [Recovered/Resolved]
  - Poor venous access [Unknown]
  - Oropharyngeal pain [Unknown]
  - Pyrexia [Unknown]
  - Chills [Unknown]
  - Nausea [Unknown]
  - Nasopharyngitis [Unknown]
  - Asthenia [Unknown]
  - Photophobia [Unknown]
  - Dizziness [Unknown]
  - Chest pain [Unknown]
  - Angina pectoris [Unknown]
  - Meningococcal infection [Unknown]
  - Headache [Unknown]

NARRATIVE: CASE EVENT DATE: 201707
